FAERS Safety Report 15234132 (Version 2)
Quarter: 2018Q3

REPORT INFORMATION
  Report Type: Spontaneous
  Country: US (occurrence: US)
  Receive Date: 20180802
  Receipt Date: 20180831
  Transmission Date: 20181010
  Serious: No
  Sender: FDA-Public Use
  Company Number: US-ASTRAZENECA-2018SE93607

PATIENT
  Sex: Female

DRUGS (1)
  1. TUDORZA PRESSAIR [Suspect]
     Active Substance: ACLIDINIUM BROMIDE
     Dosage: SHE TRIED THIS TUDORZA INHALER 4 TIMES
     Route: 055
     Dates: start: 20180713

REACTIONS (7)
  - Dyspnoea [Unknown]
  - Amnesia [Unknown]
  - Intentional product misuse [Unknown]
  - Drug dose omission by device [Unknown]
  - Visual acuity reduced [Unknown]
  - Device issue [Unknown]
  - Speech disorder [Unknown]
